FAERS Safety Report 4276978-6 (Version None)
Quarter: 2004Q1

REPORT INFORMATION
  Report Type: 
  Country: None (occurrence: None)
  Receive Date: 20040120
  Receipt Date: 20040106
  Transmission Date: 20041129
  Serious: Yes (Other)
  Sender: FDA-Public Use
  Company Number: UK058389

PATIENT
  Age: 76 Year
  Sex: Male
  Weight: 65 kg

DRUGS (4)
  1. ARANESP [Suspect]
     Indication: ANAEMIA OF MALIGNANT DISEASE
     Dosage: 150 MCG, WEEKLY, SC
     Route: 058
     Dates: start: 20031111, end: 20031118
  2. ZOLEDRONIC ACID [Concomitant]
  3. GOSERELIN [Concomitant]
  4. FENTANYL [Concomitant]

REACTIONS (2)
  - FLANK PAIN [None]
  - HAEMOGLOBIN DECREASED [None]
